FAERS Safety Report 9333242 (Version 2)
Quarter: 2013Q3

REPORT INFORMATION
  Report Type: Spontaneous
  Country: US (occurrence: US)
  Receive Date: 20130606
  Receipt Date: 20130916
  Transmission Date: 20140515
  Serious: Yes (Death, Hospitalization, Disabling, Other)
  Sender: FDA-Public Use
  Company Number: US-MERCK-1306USA002087

PATIENT
  Sex: Female
  Weight: 88.89 kg

DRUGS (11)
  1. JANUVIA [Suspect]
     Indication: TYPE 2 DIABETES MELLITUS
     Dosage: 50 MG, QD
     Route: 048
     Dates: start: 20110510, end: 20120801
  2. LANTUS [Concomitant]
     Indication: TYPE 2 DIABETES MELLITUS
  3. HUMULIN R [Concomitant]
     Indication: TYPE 2 DIABETES MELLITUS
  4. LEVEMIR [Concomitant]
     Indication: TYPE 2 DIABETES MELLITUS
  5. NOVOLOG [Concomitant]
     Indication: TYPE 2 DIABETES MELLITUS
  6. NIASPAN [Concomitant]
     Indication: TYPE 2 DIABETES MELLITUS
     Dosage: UNK
     Dates: start: 201105
  7. TRAMADOL HYDROCHLORIDE [Concomitant]
     Dosage: 50 MG, QID
     Dates: start: 20090202
  8. LOVAZA [Concomitant]
     Indication: HYPERLIPIDAEMIA
     Dosage: 1 DF, QID
     Route: 048
  9. TACROLIMUS [Concomitant]
     Indication: RENAL TRANSPLANT
  10. OMEPRAZOLE [Concomitant]
     Indication: GASTROOESOPHAGEAL REFLUX DISEASE
     Dosage: 20 MG, QD
     Route: 048
  11. NIASPAN ER [Concomitant]
     Indication: TYPE 2 DIABETES MELLITUS

REACTIONS (36)
  - Pancreatic carcinoma [Fatal]
  - Endometrial ablation [Unknown]
  - Renal transplant [Unknown]
  - Systemic lupus erythematosus [Unknown]
  - Nephrectomy [Unknown]
  - Eye disorder [Unknown]
  - Pancreatitis [Unknown]
  - Impaired gastric emptying [Unknown]
  - Thrombocytopenia [Unknown]
  - Hypertension [Unknown]
  - Stress at work [Unknown]
  - Diabetes mellitus inadequate control [Unknown]
  - Uterine leiomyoma [Unknown]
  - Uterine disorder [Unknown]
  - Adnexa uteri cyst [Unknown]
  - Cervical cyst [Unknown]
  - Abdominal hernia [Unknown]
  - Splenomegaly [Unknown]
  - Portal hypertension [Unknown]
  - Nodule [Unknown]
  - Hiatus hernia [Unknown]
  - Ulcer [Unknown]
  - Blood triglycerides increased [Unknown]
  - Vision blurred [Unknown]
  - Polyuria [Unknown]
  - Gastritis [Unknown]
  - Pain [Not Recovered/Not Resolved]
  - Bone metabolism disorder [Not Recovered/Not Resolved]
  - Hyperkalaemia [Unknown]
  - Menstruation irregular [Unknown]
  - Urinary tract infection [Unknown]
  - Staphylococcal infection [Unknown]
  - Gastritis erosive [Unknown]
  - Abdominal pain [Unknown]
  - Pneumonia [Unknown]
  - Anaemia [Unknown]
